FAERS Safety Report 9785406 (Version 3)
Quarter: 2014Q1

REPORT INFORMATION
  Report Type: Spontaneous
  Country: US (occurrence: None)
  Receive Date: 20131224
  Receipt Date: 20140131
  Transmission Date: 20141002
  Serious: Yes (Hospitalization, Other)
  Sender: FDA-Public Use
  Company Number: AUR-APL-2013-10730

PATIENT
  Age: 60 Year
  Sex: Male

DRUGS (3)
  1. METFORMIN [Suspect]
     Indication: TYPE 2 DIABETES MELLITUS
     Dosage: (10 DOSAGE FORMS), UNKNOWN
  2. NEUTRAL PROTAMINE HAGEDORN (ISOPHANE INSULIN) [Concomitant]
  3. INSULINE REGULAR ( INSULIN BOVINE) [Concomitant]

REACTIONS (5)
  - Lactic acidosis [None]
  - Intentional overdose [None]
  - Exposure via ingestion [None]
  - Alcohol abuse [None]
  - Metabolic acidosis [None]
